FAERS Safety Report 24631410 (Version 1)
Quarter: 2024Q4

REPORT INFORMATION
  Report Type: Spontaneous
  Country: CA (occurrence: CA)
  Receive Date: 20241118
  Receipt Date: 20241118
  Transmission Date: 20250115
  Serious: Yes (Other)
  Sender: ANI
  Company Number: CA-ANIPHARMA-2024-CA-004700

PATIENT
  Sex: 0

DRUGS (7)
  1. CANDESARTAN CILEXETIL [Suspect]
     Active Substance: CANDESARTAN CILEXETIL
     Indication: Blood pressure management
     Route: 048
  2. ASPIRIN [Suspect]
     Active Substance: ASPIRIN
  3. APIXABAN [Concomitant]
     Active Substance: APIXABAN
  4. BISOPROLOL [Concomitant]
     Active Substance: BISOPROLOL
  5. CLOPIDOGREL [Concomitant]
     Active Substance: CLOPIDOGREL BISULFATE
  6. FLONASE [Concomitant]
     Active Substance: FLUTICASONE PROPIONATE
  7. SPIRONOLACTONE [Concomitant]
     Active Substance: SPIRONOLACTONE

REACTIONS (2)
  - Blindness transient [Recovered/Resolved]
  - Epistaxis [Recovered/Resolved]
